FAERS Safety Report 13439929 (Version 2)
Quarter: 2017Q2

REPORT INFORMATION
  Report Type: Spontaneous
  Country: MC (occurrence: MC)
  Receive Date: 20170413
  Receipt Date: 20170424
  Transmission Date: 20170830
  Serious: Yes (Disabling, Other)
  Sender: FDA-Public Use
  Company Number: MC-ELI_LILLY_AND_COMPANY-MC201702002122

PATIENT
  Age: 84 Year
  Sex: Female
  Weight: 50 kg

DRUGS (4)
  1. ERBITUX [Suspect]
     Active Substance: CETUXIMAB
     Indication: COLON CANCER METASTATIC
     Dosage: 500 MG/M2, 2/M
     Route: 042
     Dates: start: 20150504, end: 20150727
  2. LEUCOVORIN                         /00566701/ [Concomitant]
     Active Substance: LEUCOVORIN
     Indication: COLON CANCER METASTATIC
     Dosage: UNK UNK, 2/M
     Route: 042
     Dates: start: 20150504, end: 20151109
  3. 5-FU                               /00098801/ [Concomitant]
     Active Substance: FLUOROURACIL
     Indication: COLON CANCER METASTATIC
     Dosage: UNK UNK, 2/M
     Route: 042
     Dates: start: 20150504, end: 20151109
  4. OXALIPLATIN. [Concomitant]
     Active Substance: OXALIPLATIN
     Indication: COLON CANCER METASTATIC
     Dosage: UNK, UNKNOWN
     Route: 065

REACTIONS (5)
  - Corneal perforation [Unknown]
  - Ulcerative keratitis [Recovered/Resolved]
  - Conjunctival hyperaemia [Unknown]
  - Off label use [Unknown]
  - Corneal abscess [Unknown]

NARRATIVE: CASE EVENT DATE: 201506
